FAERS Safety Report 6218785-0 (Version None)
Quarter: 2009Q2

REPORT INFORMATION
  Report Type: 
  Country: None (occurrence: None)
  Receive Date: 20090608
  Receipt Date: 20090604
  Transmission Date: 20091009
  Serious: Yes (Hospitalization)
  Sender: FDA-Public Use
  Company Number: US-BRISTOL-MYERS SQUIBB COMPANY-14649396

PATIENT
  Age: 66 Year
  Sex: Male
  Weight: 65 kg

DRUGS (23)
  1. CARBOPLATIN [Suspect]
     Indication: NON-SMALL CELL LUNG CANCER
     Route: 042
     Dates: start: 20090505, end: 20090505
  2. PACLITAXEL [Suspect]
     Indication: NON-SMALL CELL LUNG CANCER
     Route: 042
     Dates: start: 20090505, end: 20090505
  3. AXITINIB [Suspect]
     Indication: NON-SMALL CELL LUNG CANCER
     Dosage: RECENT INF ON 14MAY09
     Route: 048
     Dates: start: 20090505
  4. AVASTIN [Suspect]
     Indication: NON-SMALL CELL LUNG CANCER
     Route: 042
     Dates: start: 20090505, end: 20090505
  5. ADVAIR HFA [Concomitant]
     Dates: start: 20090422
  6. ALBUTEROL [Concomitant]
     Dates: start: 20090422
  7. PROVENTIL-HFA [Concomitant]
  8. LOPRESSOR [Concomitant]
     Indication: HYPERTENSION
  9. SPIRIVA [Concomitant]
     Indication: DYSPNOEA
     Dates: start: 20090422
  10. HYDROCODONE BITARTRATE [Concomitant]
     Indication: PAIN
     Dates: start: 20090422
  11. DECADRON [Concomitant]
     Dosage: ALSO IV; 04MAY09 TO 05MAY09 AND THEN 04MAY09
     Route: 048
     Dates: start: 20090504, end: 20090505
  12. BENADRYL [Concomitant]
     Dates: start: 20090505
  13. TAGAMET [Concomitant]
     Dates: start: 20090505
  14. KYTRIL [Concomitant]
     Indication: PREMEDICATION
     Dosage: ALSO 05MAY09 TO ONGOING
     Dates: start: 20090505, end: 20090512
  15. KYTRIL [Concomitant]
     Indication: NAUSEA
     Dosage: ALSO 05MAY09 TO ONGOING
     Dates: start: 20090505, end: 20090512
  16. HYDROCORTISONE [Concomitant]
     Dates: start: 20090512
  17. DESITIN [Concomitant]
     Dates: start: 20090512
  18. LIDOCAINE [Concomitant]
     Indication: HAEMORRHOIDS
     Dates: start: 20090512
  19. MAGNESIUM CITRATE [Concomitant]
     Dates: start: 20090510, end: 20090510
  20. COLACE [Concomitant]
     Dates: start: 20090510
  21. MIRALAX [Concomitant]
     Indication: CONSTIPATION
     Dates: start: 20090512
  22. SODIUM CHLORIDE [Concomitant]
     Indication: DEHYDRATION
     Dates: start: 20090512, end: 20090512
  23. DEXAMETHASONE [Concomitant]
     Indication: NAUSEA
     Dates: start: 20090512, end: 20090512

REACTIONS (2)
  - ABDOMINAL DISCOMFORT [None]
  - NEUTROPENIA [None]
